FAERS Safety Report 6272633-1 (Version None)
Quarter: 2009Q3

REPORT INFORMATION
  Report Type: 
  Country: None (occurrence: None)
  Receive Date: 20090713
  Receipt Date: 20090205
  Transmission Date: 20100115
  Serious: Yes (Hospitalization)
  Sender: FDA-Public Use
  Company Number: 612617

PATIENT
  Age: 51 Year
  Sex: Female

DRUGS (4)
  1. BONIVA [Suspect]
     Indication: BONE DENSITY DECREASED
     Dosage: 150 MG ORAL
     Route: 048
     Dates: start: 20060101
  2. SYNTHROID [Suspect]
  3. ESTROGEN (ESTROGENS NOS) [Concomitant]
  4. CRESTOR [Concomitant]

REACTIONS (4)
  - DACRYOSTENOSIS ACQUIRED [None]
  - HORDEOLUM [None]
  - SWOLLEN TEAR DUCT [None]
  - URTICARIA [None]
